FAERS Safety Report 9312166 (Version 1)
Quarter: 2013Q2

REPORT INFORMATION
  Report Type: Spontaneous
  Country: US (occurrence: US)
  Receive Date: 20130528
  Receipt Date: 20130528
  Transmission Date: 20140414
  Serious: Yes (Other)
  Sender: FDA-Public Use
  Company Number: US-BAYER-2013-063928

PATIENT
  Age: 81 Year
  Sex: Male
  Weight: 81.63 kg

DRUGS (5)
  1. ALEVE CAPLET [Suspect]
     Indication: ARTHRITIS
     Dosage: 2 DF, PRN
     Route: 048
     Dates: start: 201305, end: 20130520
  2. AMLODIPINE [Concomitant]
     Dosage: 5 MG, UNK
  3. AMLODIPINE [Concomitant]
     Dosage: 5 MG, UNK
  4. KETOCONAZOLE [Concomitant]
     Dosage: 200 MG, UNK
  5. HYDROCORTISONE [Concomitant]
     Dosage: 10 MG, UNK

REACTIONS (1)
  - Blood pressure increased [Recovered/Resolved]
